FAERS Safety Report 6131751-9 (Version None)
Quarter: 2009Q1

REPORT INFORMATION
  Report Type: 
  Country: None (occurrence: None)
  Receive Date: 20090325
  Receipt Date: 20090317
  Transmission Date: 20090719
  Serious: Yes (Hospitalization)
  Sender: FDA-Public Use
  Company Number: US-ROCHE-621957

PATIENT
  Sex: Male

DRUGS (7)
  1. KLONOPIN [Suspect]
     Indication: ANXIETY
     Route: 048
  2. RITALIN [Interacting]
     Route: 065
     Dates: start: 20051112
  3. LEXAPRO [Interacting]
     Indication: DEPRESSION
     Route: 048
     Dates: start: 20080601, end: 20080901
  4. LEXAPRO [Interacting]
     Route: 048
     Dates: start: 20080901, end: 20081010
  5. INDERAL [Concomitant]
  6. ALLEGRA D 24 HOUR [Concomitant]
  7. LOTENSIN [Concomitant]
     Dosage: DRUG REPORTED: LOTENSION

REACTIONS (4)
  - DRUG INTERACTION [None]
  - DYSARTHRIA [None]
  - HYPERTENSION [None]
  - INTENTIONAL DRUG MISUSE [None]
